FAERS Safety Report 18813151 (Version 1)
Quarter: 2021Q1

REPORT INFORMATION
  Report Type: Spontaneous
  Country: CA (occurrence: CA)
  Receive Date: 20210131
  Receipt Date: 20210131
  Transmission Date: 20210419
  Serious: Yes (Other)
  Sender: FDA-Public Use
  Company Number: CA-JNJFOC-20210142882

PATIENT
  Age: 43 Year
  Sex: Female

DRUGS (5)
  1. DIMENHYDRINATE. [Concomitant]
     Active Substance: DIMENHYDRINATE
  2. ACETAMINOPHEN. [Concomitant]
     Active Substance: ACETAMINOPHEN
  3. DIPHENHYDRAMINE. [Concomitant]
     Active Substance: DIPHENHYDRAMINE
  4. INFLIXIMAB, RECOMBINANT [Suspect]
     Active Substance: INFLIXIMAB
     Indication: PRODUCT USED FOR UNKNOWN INDICATION
     Route: 042
  5. LORATADINE. [Concomitant]
     Active Substance: LORATADINE

REACTIONS (5)
  - Chest pain [Unknown]
  - Throat tightness [Unknown]
  - Dizziness [Unknown]
  - Throat irritation [Unknown]
  - Dyspnoea [Unknown]
